FAERS Safety Report 5335256-4 (Version None)
Quarter: 2007Q2

REPORT INFORMATION
  Report Type: 
  Country: None (occurrence: None)
  Receive Date: 20070525
  Receipt Date: 20070515
  Transmission Date: 20071010
  Serious: Yes (Other)
  Sender: FDA-Public Use
  Company Number: US-PFIZER INC-2007021503

PATIENT
  Age: 34 Year
  Sex: Male
  Weight: 95.3 kg

DRUGS (1)
  1. CHANTIX [Suspect]
     Indication: TOBACCO USER
     Dates: start: 20070201, end: 20070101

REACTIONS (2)
  - GINGIVAL PAIN [None]
  - PAIN IN JAW [None]
